FAERS Safety Report 17500338 (Version 1)
Quarter: 2020Q1

REPORT INFORMATION
  Report Type: Spontaneous
  Country: US (occurrence: US)
  Receive Date: 20200305
  Receipt Date: 20200305
  Transmission Date: 20200409
  Serious: No
  Sender: FDA-Public Use
  Company Number: US-GLENMARK PHARMACEUTICALS-2020GMK045654

PATIENT

DRUGS (3)
  1. COLESEVELAM HYDROCHLORIDE TABLETS [625MG] [Suspect]
     Active Substance: COLESEVELAM HYDROCHLORIDE
     Indication: HIGH DENSITY LIPOPROTEIN ABNORMAL
  2. COLESEVELAM HYDROCHLORIDE TABLETS [625MG] [Suspect]
     Active Substance: COLESEVELAM HYDROCHLORIDE
     Indication: BLOOD TRIGLYCERIDES ABNORMAL
     Dosage: 625 MG, TID
     Route: 048
     Dates: start: 20191115
  3. COLESEVELAM HYDROCHLORIDE TABLETS [625MG] [Suspect]
     Active Substance: COLESEVELAM HYDROCHLORIDE
     Indication: LOW DENSITY LIPOPROTEIN ABNORMAL

REACTIONS (3)
  - Drug ineffective [Unknown]
  - Product physical issue [Unknown]
  - Product quality issue [Unknown]

NARRATIVE: CASE EVENT DATE: 2020
